FAERS Safety Report 10279490 (Version 1)
Quarter: 2014Q3

REPORT INFORMATION
  Report Type: Spontaneous
  Country: IE (occurrence: FR)
  Receive Date: 20140707
  Receipt Date: 20140707
  Transmission Date: 20150326
  Serious: Yes (Hospitalization)
  Sender: FDA-Public Use
  Company Number: 2014SP003858

PATIENT
  Age: 60 Year
  Sex: Male

DRUGS (16)
  1. CEFTRIAXONE SODIUM. [Suspect]
     Active Substance: CEFTRIAXONE SODIUM
     Indication: ESCHAR
     Route: 042
     Dates: start: 20130820, end: 201312
  2. CEFTAZIDIME. [Suspect]
     Active Substance: CEFTAZIDIME
     Indication: ESCHAR
     Route: 042
     Dates: start: 201312
  3. MACROGOL [Concomitant]
     Active Substance: POLYETHYLENE GLYCOLS
  4. FRAXIPARINE /01437702/ [Concomitant]
     Dates: start: 201309
  5. VANCOMYCIN [Suspect]
     Active Substance: VANCOMYCIN
     Indication: ESCHAR
     Route: 042
     Dates: start: 201312
  6. PARACETAMOL [Concomitant]
     Active Substance: ACETAMINOPHEN
  7. METRONIDAZOLE. [Concomitant]
     Active Substance: METRONIDAZOLE
  8. FOLIC ACID. [Concomitant]
     Active Substance: FOLIC ACID
  9. BACLOFEN. [Concomitant]
     Active Substance: BACLOFEN
  10. ATORVASTATIN CALCIUM. [Concomitant]
     Active Substance: ATORVASTATIN CALCIUM
  11. ORNITHINE OXOGLURATE [Concomitant]
  12. SITAGLIPTIN PHOSPHATE [Concomitant]
     Active Substance: SITAGLIPTIN PHOSPHATE
  13. REPAGLINIDE. [Concomitant]
     Active Substance: REPAGLINIDE
  14. FLUCONAZOLE. [Concomitant]
     Active Substance: FLUCONAZOLE
  15. METFORMIN HYDROCHLORIDE. [Concomitant]
     Active Substance: METFORMIN HYDROCHLORIDE
  16. GABAPENTIN. [Concomitant]
     Active Substance: GABAPENTIN

REACTIONS (5)
  - Jugular vein thrombosis [Unknown]
  - Phlebitis [Unknown]
  - Thrombosis in device [Recovered/Resolved]
  - Pulmonary embolism [Unknown]
  - Deep vein thrombosis [Unknown]

NARRATIVE: CASE EVENT DATE: 20130919
